FAERS Safety Report 17246310 (Version 3)
Quarter: 2021Q2

REPORT INFORMATION
  Report Type: Spontaneous
  Country: US (occurrence: US)
  Receive Date: 20200108
  Receipt Date: 20210421
  Transmission Date: 20210716
  Serious: Yes (Hospitalization, Other)
  Sender: FDA-Public Use
  Company Number: US-PFIZER INC-2020006839

PATIENT
  Age: 86 Year
  Sex: Female

DRUGS (2)
  1. ESTROGEN [Concomitant]
     Active Substance: ESTROGENS
     Dosage: UNK
     Dates: start: 201912
  2. ESTRING [Suspect]
     Active Substance: ESTRADIOL
     Indication: BLADDER IRRIGATION
     Dosage: UNK

REACTIONS (4)
  - Hypoacusis [Not Recovered/Not Resolved]
  - Off label use [Unknown]
  - Accident [Unknown]
  - Concussion [Not Recovered/Not Resolved]

NARRATIVE: CASE EVENT DATE: 20191207
